FAERS Safety Report 17791926 (Version 2)
Quarter: 2020Q4

REPORT INFORMATION
  Report Type: Spontaneous
  Country: US (occurrence: US)
  Receive Date: 20200515
  Receipt Date: 20201208
  Transmission Date: 20210113
  Serious: No
  Sender: FDA-Public Use
  Company Number: US-PFIZER INC-2020194576

PATIENT
  Age: 65 Year
  Sex: Female

DRUGS (1)
  1. IBRANCE [Suspect]
     Active Substance: PALBOCICLIB
     Indication: BREAST CANCER FEMALE
     Dosage: 125 MG

REACTIONS (8)
  - Intentional product misuse [Unknown]
  - Posture abnormal [Unknown]
  - Throat tightness [Unknown]
  - Allergic reaction to excipient [Unknown]
  - Weight increased [Unknown]
  - Breath sounds abnormal [Unknown]
  - Drug hypersensitivity [Unknown]
  - Tremor [Unknown]
